FAERS Safety Report 14423441 (Version 1)
Quarter: 2018Q1

REPORT INFORMATION
  Report Type: Spontaneous
  Country: US (occurrence: US)
  Receive Date: 20180120
  Receipt Date: 20180120
  Transmission Date: 20180509
  Serious: Yes (Death)
  Sender: FDA-Public Use
  Company Number: None

PATIENT
  Age: 64 Year
  Sex: Female
  Weight: 69 kg

DRUGS (1)
  1. NOLVADEX [Suspect]
     Active Substance: TAMOXIFEN CITRATE
     Dates: end: 20160912

REACTIONS (9)
  - Drug ineffective [None]
  - Hypoxia [None]
  - Dyspnoea [None]
  - Respiratory failure [None]
  - Pleural effusion [None]
  - Sepsis [None]
  - Terminal state [None]
  - Condition aggravated [None]
  - Ovarian cancer [None]

NARRATIVE: CASE EVENT DATE: 20170722
